FAERS Safety Report 19162591 (Version 1)
Quarter: 2021Q2

REPORT INFORMATION
  Report Type: Spontaneous
  Country: CN (occurrence: CN)
  Receive Date: 20210420
  Receipt Date: 20210420
  Transmission Date: 20210717
  Serious: Yes (Hospitalization, Other)
  Sender: FDA-Public Use
  Company Number: CN-BAXTER-2021BAX007502

PATIENT
  Age: 4 Year
  Sex: Female
  Weight: 18.6 kg

DRUGS (16)
  1. ENDOXAN [Suspect]
     Active Substance: CYCLOPHOSPHAMIDE
     Dosage: CYCLOPHOSPHAMIDE + 0.9% NS (DOSE RE?INTRODUCED)
     Route: 041
     Dates: start: 202104
  2. 0.9% SODIUM CHLORIDE INJECTION [Suspect]
     Active Substance: SODIUM CHLORIDE
     Indication: MEDICATION DILUTION
     Dosage: 0.9% NS 44 ML + CYCLOPHOSPHAMIDE 185 MG
     Route: 041
     Dates: start: 20210320, end: 20210324
  3. HYCAMTIN [Suspect]
     Active Substance: TOPOTECAN HYDROCHLORIDE
     Dosage: TOPOTECAN HYDROCHLORIDE + 0.9% NS (DOSE RE?INTRODUCED)
     Route: 041
     Dates: start: 202104
  4. ENDOXAN [Suspect]
     Active Substance: CYCLOPHOSPHAMIDE
     Dosage: CYCLOPHOSPHAMIDE 185 MG + 0.9% NS 44 ML
     Route: 041
     Dates: start: 20210320, end: 20210324
  5. 0.9% SODIUM CHLORIDE INJECTION [Suspect]
     Active Substance: SODIUM CHLORIDE
     Dosage: 0.9% NS + TOPOTECAN HYDROCHLORIDE (DOSE RE?INTRODUCED)
     Route: 041
     Dates: start: 202104
  6. ONDANSETRON HYDROCHLORIDE. [Suspect]
     Active Substance: ONDANSETRON HYDROCHLORIDE
     Dosage: ONDANSETRON HYDROCHLORIDE + 0.9% NS (DOSE RE?INTRODUCED)
     Route: 041
     Dates: start: 202104
  7. 0.9% SODIUM CHLORIDE INJECTION [Suspect]
     Active Substance: SODIUM CHLORIDE
     Dosage: 0.9% NS + ONDANSETRON HYDROCHLORIDE (DOSE RE?INTRODUCED)
     Route: 041
     Dates: start: 202104
  8. HYCAMTIN [Suspect]
     Active Substance: TOPOTECAN HYDROCHLORIDE
     Dosage: TOPOTECAN HYDROCHLORIDE 0.56 MG + 0.9% NS 22 ML
     Route: 041
     Dates: start: 20210320, end: 20210324
  9. ENDOXAN [Suspect]
     Active Substance: CYCLOPHOSPHAMIDE
     Indication: NEUROBLASTOMA RECURRENT
     Route: 065
  10. 0.9% SODIUM CHLORIDE INJECTION [Suspect]
     Active Substance: SODIUM CHLORIDE
     Dosage: 0.9% NS + CYCLOPHOSPHAMIDE (DOSE RE?INTRODUCED)
     Route: 041
     Dates: start: 202104
  11. MESNA. [Suspect]
     Active Substance: MESNA
     Indication: PROPHYLAXIS
     Route: 042
     Dates: start: 20210320, end: 20210324
  12. MESNA. [Suspect]
     Active Substance: MESNA
     Dosage: DOSE RE?INTRODUCED
     Route: 042
     Dates: start: 202104
  13. 0.9% SODIUM CHLORIDE INJECTION [Suspect]
     Active Substance: SODIUM CHLORIDE
     Dosage: 0.9% NS 22 ML + TOPOTECAN HYDROCHLORIDE 0.56 MG
     Route: 041
     Dates: start: 20210320, end: 20210324
  14. 0.9% SODIUM CHLORIDE INJECTION [Suspect]
     Active Substance: SODIUM CHLORIDE
     Dosage: 0.9% NS 25 ML + ONDANSETRON HYDROCHLORIDE 3.7 MG
     Route: 041
     Dates: start: 20210320, end: 20210324
  15. HYCAMTIN [Suspect]
     Active Substance: TOPOTECAN HYDROCHLORIDE
     Indication: NEUROBLASTOMA RECURRENT
     Route: 065
  16. ONDANSETRON HYDROCHLORIDE. [Suspect]
     Active Substance: ONDANSETRON HYDROCHLORIDE
     Indication: PROPHYLAXIS OF NAUSEA AND VOMITING
     Dosage: ONDANSETRON HYDROCHLORIDE 3.7 MG + 0.9% NS 25 ML
     Route: 041
     Dates: start: 20210320, end: 20210324

REACTIONS (4)
  - Pancytopenia [Recovered/Resolved]
  - Pancytopenia [Recovering/Resolving]
  - Ecchymosis [Recovered/Resolved]
  - Pyrexia [Recovered/Resolved]

NARRATIVE: CASE EVENT DATE: 20200815
